FAERS Safety Report 9841644 (Version 1)
Quarter: 2013Q4

REPORT INFORMATION
  Report Type: Spontaneous
  Country: US (occurrence: None)
  Receive Date: 20131223
  Receipt Date: 20131223
  Transmission Date: 20140711
  Serious: No
  Sender: FDA-Public Use
  Company Number: 220036LEO

PATIENT
  Age: 56 Year
  Sex: Male
  Weight: 87.7 kg

DRUGS (2)
  1. PICATO (0.015 %, GEL) [Suspect]
     Indication: ACTINIC KERATOSIS
     Dosage: 1 IN 1 D
     Route: 061
     Dates: start: 20121228, end: 20121228
  2. XALATAN (LATANOPROST) [Concomitant]

REACTIONS (5)
  - Application site erythema [None]
  - Application site inflammation [None]
  - Application site vesicles [None]
  - Application site swelling [None]
  - Incorrect drug administration duration [None]
